FAERS Safety Report 10378366 (Version 2)
Quarter: 2014Q4

REPORT INFORMATION
  Report Type: Spontaneous
  Country: US (occurrence: US)
  Receive Date: 20140812
  Receipt Date: 20141215
  Transmission Date: 20150528
  Serious: No
  Sender: FDA-Public Use
  Company Number: US-PFIZER INC-2014220130

PATIENT
  Age: 81 Year
  Sex: Female

DRUGS (1)
  1. SUTENT [Suspect]
     Active Substance: SUNITINIB MALATE
     Indication: RENAL CELL CARCINOMA
     Dosage: 50 MG, CYCLIC (DAILY X 28 DAYS WITH 2 WEEKS OFF)

REACTIONS (4)
  - Abdominal pain [Not Recovered/Not Resolved]
  - Constipation [Unknown]
  - Abdominal distension [Unknown]
  - Drug intolerance [Unknown]
